FAERS Safety Report 7113923-X (Version None)
Quarter: 2010Q4

REPORT INFORMATION
  Report Type: 
  Country: None (occurrence: None)
  Receive Date: 20101119
  Receipt Date: 20101112
  Transmission Date: 20110411
  Serious: Yes (Hospitalization, Congenital Anomaly)
  Sender: FDA-Public Use
  Company Number: A0684472A

PATIENT
  Sex: Male
  Weight: 0.8 kg

DRUGS (3)
  1. PAXIL CR [Suspect]
     Indication: DEPRESSION
     Dosage: 25MG PER DAY
     Dates: start: 20020101, end: 20040101
  2. PRENATAL VITAMINS [Concomitant]
  3. AMOXIL [Concomitant]
     Dates: start: 20031028

REACTIONS (6)
  - ATRIAL SEPTAL DEFECT [None]
  - BRONCHOPULMONARY DYSPLASIA [None]
  - DRUG EXPOSURE DURING PREGNANCY [None]
  - PATENT DUCTUS ARTERIOSUS [None]
  - PULMONARY HYPERTENSION [None]
  - STRABISMUS [None]
